FAERS Safety Report 10682220 (Version 1)
Quarter: 2014Q4

REPORT INFORMATION
  Report Type: Spontaneous
  Country: US (occurrence: None)
  Receive Date: 20141229
  Receipt Date: 20141229
  Transmission Date: 20150529
  Serious: No
  Sender: FDA-Public Use
  Company Number: None

PATIENT
  Age: 43 Year
  Sex: Female
  Weight: 52.16 kg

DRUGS (1)
  1. MIRENA [Suspect]
     Active Substance: LEVONORGESTREL
     Dates: start: 20141205, end: 20141222

REACTIONS (3)
  - Medical device complication [None]
  - Vaginal haemorrhage [None]
  - Pain [None]

NARRATIVE: CASE EVENT DATE: 20141222
